FAERS Safety Report 6905552-5 (Version None)
Quarter: 2010Q3

REPORT INFORMATION
  Report Type: 
  Country: None (occurrence: None)
  Receive Date: 20100804
  Receipt Date: 20100721
  Transmission Date: 20110219
  Serious: Yes (Death)
  Sender: FDA-Public Use
  Company Number: AU-MYLANLABS-2010S1013011

PATIENT
  Age: 32 Year
  Sex: Female

DRUGS (5)
  1. TRAMADOL HYDROCHLORIDE [Suspect]
     Route: 065
  2. VENLAFAXINE [Suspect]
     Route: 065
  3. DIAZEPAM [Suspect]
     Route: 065
  4. PARACETAMOL [Suspect]
     Route: 065
  5. DEXTROPROPOXYPHENE [Suspect]
     Route: 065

REACTIONS (2)
  - ASPIRATION [None]
  - SEROTONIN SYNDROME [None]
